FAERS Safety Report 8336324-5 (Version None)
Quarter: 2012Q2

REPORT INFORMATION
  Report Type: 
  Country: None (occurrence: None)
  Receive Date: 20120501
  Receipt Date: 20120427
  Transmission Date: 20120825
  Serious: Yes (Hospitalization, Other)
  Sender: FDA-Public Use
  Company Number: ADR-2011-11717

PATIENT
  Sex: Male

DRUGS (1)
  1. BACLOFEN [Suspect]
     Dosage: 50MCG/DAY
     Route: 037

REACTIONS (3)
  - DRUG HYPERSENSITIVITY [None]
  - IMPLANT SITE ERYTHEMA [None]
  - MOVEMENT DISORDER [None]
